FAERS Safety Report 9387209 (Version 1)
Quarter: 2013Q3

REPORT INFORMATION
  Report Type: Spontaneous
  Country: RU (occurrence: RU)
  Receive Date: 20130708
  Receipt Date: 20130708
  Transmission Date: 20140515
  Serious: Yes (Other)
  Sender: FDA-Public Use
  Company Number: RU-RANBAXY-2013R3-70722

PATIENT
  Age: 48 Year
  Sex: Male
  Weight: 82 kg

DRUGS (3)
  1. VAYROVA [Suspect]
     Indication: HERPES VIRUS INFECTION
     Dosage: 500 MG, BID
     Route: 048
     Dates: start: 20130524, end: 20130525
  2. VAYROVA [Suspect]
     Indication: ONYCHOMYCOSIS
  3. RUMYCOZ [Concomitant]
     Indication: ONYCHOMYCOSIS
     Dosage: 2 DF, BID
     Route: 048
     Dates: start: 20130524, end: 20130531

REACTIONS (1)
  - Cyanosis [Recovering/Resolving]
